FAERS Safety Report 6728528-X (Version None)
Quarter: 2010Q2

REPORT INFORMATION
  Report Type: 
  Country: None (occurrence: None)
  Receive Date: 20100517
  Receipt Date: 20100511
  Transmission Date: 20101027
  Serious: Yes (Death, Hospitalization, Other)
  Sender: FDA-Public Use
  Company Number: US-ELI_LILLY_AND_COMPANY-US201002002836

PATIENT
  Sex: Male
  Weight: 65.76 kg

DRUGS (35)
  1. GEMZAR [Suspect]
     Indication: ADENOCARCINOMA PANCREAS
     Dosage: 1900 MG, UNK
     Route: 042
     Dates: start: 20100202, end: 20100202
  2. TARCEVA [Concomitant]
     Indication: PANCREATIC CARCINOMA METASTATIC
     Dosage: 150 MG, DAILY (1/D)
     Route: 048
     Dates: start: 20100129, end: 20100101
  3. BENADRYL [Concomitant]
     Dosage: 25 MG, UNK
     Route: 042
     Dates: start: 20100202
  4. RANITIDINE [Concomitant]
     Dosage: UNK, AS NEEDED
  5. REGLAN [Concomitant]
     Dosage: 50 MG, UNK
     Route: 042
     Dates: start: 20100202
  6. DEXAMETHASONE [Concomitant]
     Dosage: 10 MG, UNK
     Route: 042
     Dates: start: 20100202
  7. COMBIVENT [Concomitant]
     Indication: DYSPNOEA
     Dosage: UNK, EVERY 3 HRS PRN
     Route: 055
     Dates: start: 20100105
  8. IBUPROFEN [Concomitant]
     Dosage: 800 MG, EVERY 8 HRS, X 7 DAYS
     Route: 048
     Dates: start: 20100105
  9. LEVAQUIN [Concomitant]
     Indication: URINARY TRACT INFECTION
     Dosage: 500 MG, DAILY (1/D), X 4 DAYS
     Route: 048
     Dates: start: 20100105
  10. LEVAQUIN [Concomitant]
     Dosage: 750 MG, UNKNOWN
     Route: 042
     Dates: start: 20100204
  11. NEXIUM [Concomitant]
     Dosage: 40 MG, DAILY (1/D)
     Route: 048
  12. OXYCODONE [Concomitant]
     Indication: PAIN
     Dosage: 15 MG, EVERY 4 HRS
     Route: 048
     Dates: end: 20100101
  13. OXYCODONE [Concomitant]
     Dosage: 5 MG, AS NEEDED
     Route: 048
     Dates: start: 20100101
  14. OXYCONTIN [Concomitant]
     Indication: PAIN
     Dosage: UNK, 2/D
     Route: 048
     Dates: start: 20100101
  15. MORPHINE SULFATE [Concomitant]
     Dosage: 130 MG, 2/D
  16. KEFLEX /00145501/ [Concomitant]
     Indication: URINARY TRACT INFECTION
     Dosage: 500 MG, 3/D
     Route: 048
  17. TYLENOL                                 /SCH/ [Concomitant]
     Indication: PAIN
     Dosage: 650 MG, EVERY 6 HRS PRN
     Route: 048
     Dates: start: 20100204
  18. ATENOLOL [Concomitant]
     Dosage: 50 MG, DAILY (1/D)
     Route: 048
     Dates: start: 20100204
  19. DILTIAZEM HCL [Concomitant]
     Dosage: 60 MG, EVERY 6 HRS
     Route: 048
     Dates: start: 20100204
  20. OMEPRAZOLE [Concomitant]
     Dosage: 20 MG, 2/D
     Dates: start: 20100204
  21. PHENERGAN [Concomitant]
     Indication: NAUSEA
     Dosage: 12.5 MG, EVERY 6 HRS PRN
     Route: 048
     Dates: start: 20100105
  22. PHENERGAN [Concomitant]
     Dosage: 25 MG, EVERY 6 HRS PRN
     Route: 048
     Dates: start: 20100105
  23. DOCUSATE SODIUM [Concomitant]
     Dates: start: 20100204
  24. DURAGESIC-100 [Concomitant]
     Dosage: 100 UG, EVERY 72 HOURS
     Route: 062
     Dates: start: 20100204
  25. HEPARIN SODIUM [Concomitant]
     Dates: start: 20100204
  26. DILAUDID [Concomitant]
     Indication: ABDOMINAL PAIN
     Dates: start: 20100101
  27. DILAUDID [Concomitant]
     Dosage: 1 MG, UNKNOWN
     Route: 042
     Dates: start: 20100204
  28. TORADOL [Concomitant]
     Indication: ABDOMINAL PAIN
     Dates: start: 20100101
  29. METHADONE HYDROCHLORIDE [Concomitant]
     Dosage: 40 MG, DAILY (1/D)
     Route: 048
  30. ZOFRAN [Concomitant]
     Dosage: 4 MG, UNK
     Route: 042
     Dates: start: 20100204
  31. MARINOL [Concomitant]
     Dosage: 2.5 MG, UNKNOWN
     Dates: start: 20100204
  32. MIRALAX [Concomitant]
     Dosage: UNK, EACH EVENING
     Route: 048
     Dates: start: 20100204
  33. ANUSOL /00156502/ [Concomitant]
     Dates: start: 20100205
  34. SENOKOT [Concomitant]
     Dates: start: 20100204
  35. SODIUM CHLORIDE [Concomitant]
     Indication: DEHYDRATION
     Dosage: 1000 ML, UNK
     Route: 042
     Dates: start: 20100105

REACTIONS (12)
  - ATELECTASIS [None]
  - CARDIAC FAILURE [None]
  - CHEST PAIN [None]
  - DEHYDRATION [None]
  - DISSEMINATED INTRAVASCULAR COAGULATION [None]
  - HEPATIC ENCEPHALOPATHY [None]
  - HEPATIC FAILURE [None]
  - HICCUPS [None]
  - MALIGNANT NEOPLASM PROGRESSION [None]
  - PRODUCTIVE COUGH [None]
  - RENAL FAILURE [None]
  - TACHYCARDIA [None]
